FAERS Safety Report 11486222 (Version 2)
Quarter: 2015Q3

REPORT INFORMATION
  Report Type: Spontaneous
  Country: IT (occurrence: IT)
  Receive Date: 20150909
  Receipt Date: 20150929
  Transmission Date: 20151125
  Serious: Yes (Other)
  Sender: FDA-Public Use
  Company Number: IT-NOVOPROD-462430

PATIENT
  Age: 77 Year
  Sex: Male

DRUGS (1)
  1. ACTRAPID [Suspect]
     Active Substance: INSULIN HUMAN
     Indication: DIABETES MELLITUS
     Dosage: UNK
     Route: 065
     Dates: end: 20131014

REACTIONS (3)
  - Hyperhidrosis [Recovered/Resolved]
  - Hypoglycaemia [Recovered/Resolved]
  - Pallor [Recovered/Resolved]

NARRATIVE: CASE EVENT DATE: 20131014
